FAERS Safety Report 21117142 (Version 2)
Quarter: 2024Q1

REPORT INFORMATION
  Report Type: Report from Study
  Country: US (occurrence: US)
  Receive Date: 20220722
  Receipt Date: 20240221
  Transmission Date: 20240410
  Serious: No
  Sender: FDA-Public Use
  Company Number: US-KYOWAKIRIN-2022BKK011343

PATIENT

DRUGS (4)
  1. BUROSUMAB [Suspect]
     Active Substance: BUROSUMAB
     Indication: Hereditary hypophosphataemic rickets
     Dosage: 40 MG, 1X/2 WEEKS
     Route: 065
  2. BUROSUMAB [Suspect]
     Active Substance: BUROSUMAB
     Dosage: 60 MG, 1X/2 WEEKS
     Route: 065
  3. BUROSUMAB [Suspect]
     Active Substance: BUROSUMAB
     Dosage: 40 MG, 1X/MONTH
     Route: 065
  4. BUROSUMAB [Suspect]
     Active Substance: BUROSUMAB
     Dosage: 60 MG, 1X/MONTH
     Route: 065

REACTIONS (5)
  - Condition aggravated [Unknown]
  - Injection site swelling [Recovering/Resolving]
  - Injection site erythema [Unknown]
  - Injection site pruritus [Unknown]
  - Injection site reaction [Unknown]
